FAERS Safety Report 4481465-6 (Version None)
Quarter: 2004Q3

REPORT INFORMATION
  Report Type: 
  Country: None (occurrence: None)
  Receive Date: 20040923
  Receipt Date: 20040610
  Transmission Date: 20050211
  Serious: No
  Sender: FDA-Public Use
  Company Number: USA040669917

PATIENT
  Age: 70 Year
  Sex: Female

DRUGS (5)
  1. FORTEO [Suspect]
     Indication: OSTEOPOROSIS
     Dates: start: 20030601, end: 20040603
  2. ATENOLOL [Concomitant]
  3. MULTIVITAMIN [Concomitant]
  4. ACETAMINOPHEN AND CODEINE NO. 3 [Concomitant]
  5. ADVIL [Concomitant]

REACTIONS (2)
  - BACK PAIN [None]
  - PAIN [None]
